FAERS Safety Report 7477872-X (Version None)
Quarter: 2011Q2

REPORT INFORMATION
  Report Type: 
  Country: None (occurrence: None)
  Receive Date: 20110513
  Receipt Date: 20110505
  Transmission Date: 20111010
  Serious: Yes (Other)
  Sender: FDA-Public Use
  Company Number: US-NOVOPROD-325806

PATIENT
  Sex: Male
  Weight: 115.19 kg

DRUGS (5)
  1. ATENOLOL [Concomitant]
     Indication: HYPERTENSION
  2. LISINOPRIL [Concomitant]
     Indication: HYPERTENSION
  3. VICTOZA [Suspect]
     Dosage: 1.2 MG, QD
     Route: 058
     Dates: start: 20110301, end: 20110324
  4. VICTOZA [Suspect]
     Indication: TYPE 2 DIABETES MELLITUS
     Dosage: 0.6 MG, QD
     Route: 058
     Dates: start: 20110312, end: 20110301
  5. SIMVASTATIN [Concomitant]
     Indication: BLOOD CHOLESTEROL INCREASED

REACTIONS (2)
  - DUODENITIS [None]
  - GASTRITIS [None]
